FAERS Safety Report 17256428 (Version 1)
Quarter: 2020Q1

REPORT INFORMATION
  Report Type: Spontaneous
  Country: FR (occurrence: FR)
  Receive Date: 20200110
  Receipt Date: 20200110
  Transmission Date: 20200409
  Serious: Yes (Hospitalization)
  Sender: FDA-Public Use
  Company Number: FR-ROCHE-2518753

PATIENT
  Age: 68 Year
  Sex: Female

DRUGS (2)
  1. RIVOTRIL [Suspect]
     Active Substance: CLONAZEPAM
     Indication: TOXICITY TO VARIOUS AGENTS
     Dosage: UNSPECIFIED
     Route: 048
     Dates: start: 20170211
  2. STRESAM [Suspect]
     Active Substance: ETIFOXINE
     Indication: TOXICITY TO VARIOUS AGENTS
     Dosage: MOST RECENT DOSE PRIOR TO AE 11/FEB/2017
     Route: 048
     Dates: start: 20170211

REACTIONS (3)
  - Hyporeflexia [Recovered/Resolved]
  - Coma [Recovered/Resolved]
  - Toxicity to various agents [Recovered/Resolved]

NARRATIVE: CASE EVENT DATE: 20170211
